FAERS Safety Report 6689168-4 (Version None)
Quarter: 2010Q2

REPORT INFORMATION
  Report Type: 
  Country: None (occurrence: None)
  Receive Date: 20100415
  Receipt Date: 20100405
  Transmission Date: 20101027
  Serious: Yes (Other)
  Sender: FDA-Public Use
  Company Number: 2010SP020667

PATIENT
  Age: 44 Year
  Sex: Female

DRUGS (1)
  1. SAPHRIS [Suspect]
     Indication: DRUG USE FOR UNKNOWN INDICATION
     Dosage: SL
     Route: 060

REACTIONS (3)
  - COMPULSIVE SHOPPING [None]
  - SEDATION [None]
  - SUICIDAL IDEATION [None]
